FAERS Safety Report 15285578 (Version 1)
Quarter: 2018Q3

REPORT INFORMATION
  Report Type: Spontaneous
  Country: US (occurrence: US)
  Receive Date: 20180816
  Receipt Date: 20180816
  Transmission Date: 20181010
  Serious: No
  Sender: FDA-Public Use
  Company Number: US-BAYER-2018-151261

PATIENT
  Sex: Male

DRUGS (2)
  1. ALIQOPA [Suspect]
     Active Substance: COPANLISIB
     Indication: LYMPHOMA
     Dosage: 60 MG, FLAT DOSE
     Route: 042
  2. ALIQOPA [Suspect]
     Active Substance: COPANLISIB
     Indication: LYMPHOMA
     Dosage: 85% DOSE, FLAT DOSE
     Route: 042
     Dates: start: 20180808

REACTIONS (3)
  - Intentional underdose [Not Recovered/Not Resolved]
  - Catheter site related reaction [Not Recovered/Not Resolved]
  - Catheter site extravasation [Not Recovered/Not Resolved]

NARRATIVE: CASE EVENT DATE: 20180808
